FAERS Safety Report 14161388 (Version 2)
Quarter: 2017Q4

REPORT INFORMATION
  Report Type: Spontaneous
  Country: US (occurrence: US)
  Receive Date: 20171106
  Receipt Date: 20171220
  Transmission Date: 20180321
  Serious: Yes (Other)
  Sender: FDA-Public Use
  Company Number: US-BAYER-2017-213637

PATIENT
  Age: 31 Year
  Sex: Female
  Weight: 162 kg

DRUGS (6)
  1. NIFEDIPIN [Concomitant]
     Active Substance: NIFEDIPINE
     Dosage: 30 MG, UNK
     Route: 048
  2. MIRENA [Suspect]
     Active Substance: LEVONORGESTREL
     Indication: CONTRACEPTION
     Dosage: 20 MCG/24HR, CONT
     Route: 015
     Dates: start: 20170801, end: 20171031
  3. MIRENA [Suspect]
     Active Substance: LEVONORGESTREL
     Indication: CONTRACEPTION
  4. LABETALOL [Concomitant]
     Active Substance: LABETALOL\LABETALOL HYDROCHLORIDE
     Dosage: 400 MG, BID
  5. IBUPROFEN. [Concomitant]
     Active Substance: IBUPROFEN
  6. TRAMADOL. [Concomitant]
     Active Substance: TRAMADOL

REACTIONS (3)
  - Procedural haemorrhage [None]
  - Abdominal pain lower [None]
  - Device expulsion [None]

NARRATIVE: CASE EVENT DATE: 20170811
